FAERS Safety Report 5371570-4 (Version None)
Quarter: 2007Q2

REPORT INFORMATION
  Report Type: 
  Country: None (occurrence: None)
  Receive Date: 20070625
  Receipt Date: 20070614
  Transmission Date: 20071010
  Serious: Yes (Hospitalization)
  Sender: FDA-Public Use
  Company Number: 2007BI008630

PATIENT
  Age: 30 Year
  Sex: Female

DRUGS (17)
  1. AVONEX [Suspect]
     Indication: MULTIPLE SCLEROSIS
     Dosage: 30 UG;QW;IM
     Route: 030
     Dates: start: 20060105, end: 20060601
  2. AVONEX [Suspect]
     Indication: MULTIPLE SCLEROSIS
     Dosage: 30 UG;QW;IM
     Route: 030
     Dates: start: 20060701, end: 20070201
  3. ATIVAN [Concomitant]
  4. RISPERDAL [Concomitant]
  5. AMITIZA [Concomitant]
  6. SENNALAX [Concomitant]
  7. DOCUSATE [Concomitant]
  8. NEXIUM [Concomitant]
  9. LYRICA [Concomitant]
  10. TOPAMAX [Concomitant]
  11. DEPAKOTE [Concomitant]
  12. HYDROCHLOROTHIAZIDE [Concomitant]
  13. ZANAFLEX [Concomitant]
  14. HALDOL [Concomitant]
  15. COGENTIN [Concomitant]
  16. ULTRAM [Concomitant]
  17. AMBIEN [Concomitant]

REACTIONS (6)
  - HALLUCINATION [None]
  - INTERVERTEBRAL DISC PROTRUSION [None]
  - PAIN [None]
  - PSYCHOTIC DISORDER [None]
  - RADICULAR PAIN [None]
  - SPINAL OSTEOARTHRITIS [None]
